FAERS Safety Report 8137789-4 (Version None)
Quarter: 2012Q1

REPORT INFORMATION
  Report Type: 
  Country: None (occurrence: None)
  Receive Date: 20120213
  Receipt Date: 20120124
  Transmission Date: 20120608
  Serious: Yes (Disabling)
  Sender: FDA-Public Use
  Company Number: 2012BN000013

PATIENT
  Age: 74 Month
  Sex: Male

DRUGS (7)
  1. CARBOPLATIN [Concomitant]
  2. ASPIRIN [Concomitant]
  3. CARBOPLATIN [Suspect]
     Indication: RETINOBLASTOMA
     Dosage: 30 MG;;IART
     Route: 013
  4. MELPHALAN HYDROCHLORIDE [Suspect]
     Indication: RETINOBLASTOMA
     Dosage: 5 MG;;IART
     Route: 013
  5. ETOPOSIDE [Concomitant]
  6. HEPARIN [Concomitant]
  7. VINCRISTINE SULFATE [Concomitant]

REACTIONS (5)
  - ARTERIAL DISORDER [None]
  - EYELID PTOSIS [None]
  - ARTERIAL SPASM [None]
  - EYELID OEDEMA [None]
  - EXTRAOCULAR MUSCLE DISORDER [None]
